FAERS Safety Report 14166384 (Version 5)
Quarter: 2019Q2

REPORT INFORMATION
  Report Type: Spontaneous
  Country: US (occurrence: US)
  Receive Date: 20171107
  Receipt Date: 20190507
  Transmission Date: 20190711
  Serious: Yes (Death, Other)
  Sender: FDA-Public Use
  Company Number: US-ASTRAZENECA-2017SF12313

PATIENT
  Age: 19026 Day
  Sex: Male
  Weight: 99.8 kg

DRUGS (48)
  1. NEXIUM 24HR [Suspect]
     Active Substance: ESOMEPRAZOLE MAGNESIUM
     Indication: GASTROOESOPHAGEAL REFLUX DISEASE
     Route: 048
     Dates: start: 20141217
  2. EICOSAPENTAENOIC ACID [Concomitant]
     Active Substance: ICOSAPENT
  3. PEPCID [Concomitant]
     Active Substance: FAMOTIDINE
  4. NORCO [Concomitant]
     Active Substance: ACETAMINOPHEN\HYDROCODONE BITARTRATE
  5. AMIODARONE [Concomitant]
     Active Substance: AMIODARONE
  6. ATORVASTATIN [Concomitant]
     Active Substance: ATORVASTATIN
  7. PREVACID [Suspect]
     Active Substance: LANSOPRAZOLE
     Indication: GASTROOESOPHAGEAL REFLUX DISEASE
     Route: 065
  8. LOSARTAN. [Concomitant]
     Active Substance: LOSARTAN
  9. NOVOLIN [Concomitant]
     Active Substance: INSULIN HUMAN
  10. LIPITOR [Concomitant]
     Active Substance: ATORVASTATIN CALCIUM
  11. NEXIUM 24HR [Suspect]
     Active Substance: ESOMEPRAZOLE MAGNESIUM
     Indication: GASTROOESOPHAGEAL REFLUX DISEASE
     Route: 048
     Dates: end: 201511
  12. AMITRIPTYLINE [Concomitant]
     Active Substance: AMITRIPTYLINE
     Indication: SLEEP DISORDER
     Dates: start: 201501, end: 201511
  13. COLACE [Concomitant]
     Active Substance: DOCUSATE SODIUM
  14. ALTACE [Concomitant]
     Active Substance: RAMIPRIL
  15. OMEPRAZOLE. [Suspect]
     Active Substance: OMEPRAZOLE
     Indication: GASTROOESOPHAGEAL REFLUX DISEASE
     Route: 065
     Dates: start: 20150928
  16. SPIRONOLACTONE. [Concomitant]
     Active Substance: SPIRONOLACTONE
     Indication: DIVERTICULITIS
     Dates: end: 201511
  17. RANEXA [Concomitant]
     Active Substance: RANOLAZINE
  18. ZANTAC [Concomitant]
     Active Substance: RANITIDINE HYDROCHLORIDE
  19. COREG [Concomitant]
     Active Substance: CARVEDILOL
  20. TRICOR [Concomitant]
     Active Substance: FENOFIBRATE
  21. OXYCODONE/ACETAMINOPHEN [Concomitant]
     Active Substance: ACETAMINOPHEN\OXYCODONE HYDROCHLORIDE
     Indication: PAIN
     Dates: start: 201501, end: 201511
  22. METOPROLOL. [Concomitant]
     Active Substance: METOPROLOL
     Indication: BLOOD PRESSURE ABNORMAL
     Dates: start: 201506, end: 201511
  23. ASPIRIN. [Concomitant]
     Active Substance: ASPIRIN
     Indication: HEADACHE
     Dosage: 2-3 TIMES A WEEK
  24. ACETAMINOPHEN. [Concomitant]
     Active Substance: ACETAMINOPHEN
     Indication: HEADACHE
  25. HYZAAR [Concomitant]
     Active Substance: HYDROCHLOROTHIAZIDE\LOSARTAN POTASSIUM
  26. ZOCOR [Concomitant]
     Active Substance: SIMVASTATIN
  27. OXYCODONE [Concomitant]
     Active Substance: OXYCODONE
  28. IMDUR [Concomitant]
     Active Substance: ISOSORBIDE MONONITRATE
     Indication: ANGINA PECTORIS
     Dates: end: 201511
  29. LANTUS [Concomitant]
     Active Substance: INSULIN GLARGINE
  30. FAMOTIDINE. [Concomitant]
     Active Substance: FAMOTIDINE
  31. CIMETIDINE [Concomitant]
     Active Substance: CIMETIDINE
  32. BYSTOLIC [Concomitant]
     Active Substance: NEBIVOLOL HYDROCHLORIDE
  33. LOVENOX [Concomitant]
     Active Substance: ENOXAPARIN SODIUM
  34. ISOPHANE INSULIN [Concomitant]
     Active Substance: INSULIN NOS
  35. AVANDIA [Concomitant]
     Active Substance: ROSIGLITAZONE MALEATE
  36. NYSTATIN. [Concomitant]
     Active Substance: NYSTATIN
  37. NEXIUM [Suspect]
     Active Substance: ESOMEPRAZOLE MAGNESIUM
     Indication: GASTROOESOPHAGEAL REFLUX DISEASE
     Route: 048
  38. PRILOSEC OTC [Suspect]
     Active Substance: OMEPRAZOLE MAGNESIUM
     Indication: GASTROOESOPHAGEAL REFLUX DISEASE
     Route: 048
  39. LEVOTHYROXINE. [Concomitant]
     Active Substance: LEVOTHYROXINE
     Indication: THYROID DISORDER
     Dates: end: 201511
  40. TIZANIDINE. [Concomitant]
     Active Substance: TIZANIDINE
     Indication: MUSCLE SPASMS
     Dates: start: 201501, end: 201511
  41. PLAVIX [Concomitant]
     Active Substance: CLOPIDOGREL BISULFATE
     Indication: ANTIPLATELET THERAPY
     Dates: start: 201501, end: 201511
  42. NEXIUM [Suspect]
     Active Substance: ESOMEPRAZOLE MAGNESIUM
     Indication: GASTROOESOPHAGEAL REFLUX DISEASE
     Route: 048
     Dates: start: 2014, end: 2015
  43. AMIODARONE [Concomitant]
     Active Substance: AMIODARONE
     Indication: HEART RATE IRREGULAR
     Dates: start: 201506, end: 201511
  44. NEURONTIN [Concomitant]
     Active Substance: GABAPENTIN
     Indication: NEURALGIA
     Dates: end: 201511
  45. NOVOLOG [Concomitant]
     Active Substance: INSULIN ASPART
  46. LASIX [Concomitant]
     Active Substance: FUROSEMIDE
     Indication: FLUID RETENTION
     Dates: end: 201511
  47. NITROGLYCERIN. [Concomitant]
     Active Substance: NITROGLYCERIN
  48. SYNTHROID [Concomitant]
     Active Substance: LEVOTHYROXINE SODIUM

REACTIONS (11)
  - Renal failure [Unknown]
  - Cardiac failure [Fatal]
  - Thrombosis [Not Recovered/Not Resolved]
  - Chronic kidney disease [Fatal]
  - Cardiac arrest [Fatal]
  - Cardiac failure congestive [Unknown]
  - Acute kidney injury [Fatal]
  - Brain injury [Fatal]
  - Ischaemic cardiomyopathy [Unknown]
  - Myocardial infarction [Fatal]
  - Chronic left ventricular failure [Unknown]

NARRATIVE: CASE EVENT DATE: 20150928
